FAERS Safety Report 6784108-1 (Version None)
Quarter: 2010Q2

REPORT INFORMATION
  Report Type: 
  Country: None (occurrence: None)
  Receive Date: 20100622
  Receipt Date: 20100610
  Transmission Date: 20101027
  Serious: Yes (Other)
  Sender: FDA-Public Use
  Company Number: RO-GENZYME-CERZ-1001340

PATIENT

DRUGS (1)
  1. CEREZYME [Suspect]
     Indication: DRUG EXPOSURE VIA BREAST MILK
     Dosage: 60 U/KG, Q2W
     Dates: start: 20050301, end: 20050901

REACTIONS (1)
  - DEAFNESS [None]
